FAERS Safety Report 19132196 (Version 1)
Quarter: 2021Q2

REPORT INFORMATION
  Report Type: Spontaneous
  Country: US (occurrence: US)
  Receive Date: 20210413
  Receipt Date: 20210413
  Transmission Date: 20210717
  Serious: Yes (Other)
  Sender: FDA-Public Use
  Company Number: US-TEVA-2021-US-1900732

PATIENT

DRUGS (2)
  1. METOPROLOL TEVA [Suspect]
     Active Substance: METOPROLOL
     Dosage: TAKE MORE PILLS PER DAY TO KEEP THE BLOOD PRESSURE LEVEL
     Route: 065
  2. METOPROLOL ACTAVIS [Suspect]
     Active Substance: METOPROLOL
     Dosage: TAKE MORE PILLS PER DAY TO KEEP THE BLOOD PRESSURE LEVEL
     Route: 065

REACTIONS (2)
  - Ventricular extrasystoles [Unknown]
  - Therapeutic product effect decreased [Unknown]
